FAERS Safety Report 13168979 (Version 1)
Quarter: 2017Q1

REPORT INFORMATION
  Report Type: Spontaneous
  Country: US (occurrence: US)
  Receive Date: 20170131
  Receipt Date: 20170131
  Transmission Date: 20170428
  Serious: No
  Sender: FDA-Public Use
  Company Number: US-ABBVIE-16K-163-1537655-00

PATIENT
  Sex: Male
  Weight: 79.45 kg

DRUGS (10)
  1. REMICADE [Suspect]
     Active Substance: INFLIXIMAB
     Indication: PSORIATIC ARTHROPATHY
     Route: 065
     Dates: end: 2013
  2. XELJANZ [Concomitant]
     Active Substance: TOFACITINIB CITRATE
     Indication: PRODUCT USED FOR UNKNOWN INDICATION
  3. REMICADE [Suspect]
     Active Substance: INFLIXIMAB
     Indication: JOINT SWELLING
     Route: 065
  4. HUMIRA [Suspect]
     Active Substance: ADALIMUMAB
     Indication: JOINT SWELLING
  5. HUMIRA [Suspect]
     Active Substance: ADALIMUMAB
     Indication: PAIN
  6. METHOTREXATE. [Suspect]
     Active Substance: METHOTREXATE
     Indication: IMMUNOSUPPRESSION
     Route: 065
     Dates: start: 2011, end: 2014
  7. ADVIL [Concomitant]
     Active Substance: IBUPROFEN
     Indication: PAIN
     Dosage: 2 PILLS THREE TIMES A DAY AS NEEDED
     Route: 065
  8. REMICADE [Suspect]
     Active Substance: INFLIXIMAB
     Indication: PAIN
  9. TRAMADOL. [Concomitant]
     Active Substance: TRAMADOL
     Indication: PAIN
     Dates: start: 201111
  10. HUMIRA [Suspect]
     Active Substance: ADALIMUMAB
     Indication: PSORIATIC ARTHROPATHY
     Route: 058
     Dates: start: 2013

REACTIONS (8)
  - Gait disturbance [Unknown]
  - Drug intolerance [Unknown]
  - Blood test abnormal [Unknown]
  - Joint swelling [Unknown]
  - Arthritis [Unknown]
  - Pain [Unknown]
  - Inflammatory marker increased [Unknown]
  - Drug ineffective [Unknown]
